FAERS Safety Report 22109587 (Version 2)
Quarter: 2023Q1

REPORT INFORMATION
  Report Type: Other
  Country: DE (occurrence: None)
  Receive Date: 20230317
  Receipt Date: 20230323
  Transmission Date: 20230418
  Serious: No
  Sender: FDA-Public Use
  Company Number: DE-ROCHE-3312559

PATIENT
  Age: 34 Year
  Sex: Female
  Weight: 63 kg

DRUGS (12)
  1. OCRELIZUMAB [Suspect]
     Active Substance: OCRELIZUMAB
     Indication: Relapsing multiple sclerosis
     Route: 042
     Dates: start: 20210204, end: 20210219
  2. OCRELIZUMAB [Suspect]
     Active Substance: OCRELIZUMAB
     Route: 042
     Dates: start: 20210812
  3. DULOXETINE [Concomitant]
     Active Substance: DULOXETINE
     Indication: Depressive symptom
     Route: 048
     Dates: start: 20230306
  4. CHOLECALCIFEROL [Concomitant]
     Active Substance: CHOLECALCIFEROL
     Route: 048
     Dates: start: 20210511
  5. EBASTINE [Concomitant]
     Active Substance: EBASTINE
     Route: 048
     Dates: start: 20210107
  6. PREDNISOLONE [Concomitant]
     Active Substance: PREDNISOLONE
     Route: 042
     Dates: start: 20210204
  7. PFIZER-BIONTECH COVID-19 VACCINE [Concomitant]
     Active Substance: TOZINAMERAN
     Indication: COVID-19 prophylaxis
     Route: 030
     Dates: start: 20211201, end: 20211201
  8. PFIZER-BIONTECH COVID-19 VACCINE [Concomitant]
     Active Substance: TOZINAMERAN
     Route: 030
     Dates: start: 20210629, end: 20210629
  9. FERROUS GLYCINE SULFATE [Concomitant]
     Active Substance: FERROUS GLYCINE SULFATE
     Indication: Iron deficiency
     Route: 048
     Dates: start: 20221123
  10. NEUPRO [Concomitant]
     Active Substance: ROTIGOTINE
     Indication: Restless legs syndrome
     Route: 062
     Dates: start: 20230306
  11. FERINJECT [Concomitant]
     Active Substance: FERRIC CARBOXYMALTOSE
     Indication: Iron deficiency
     Dates: start: 202301, end: 202301
  12. PAROXETINE [Concomitant]
     Active Substance: PAROXETINE
     Indication: Depression
     Route: 048
     Dates: start: 20210511, end: 20210624

REACTIONS (1)
  - COVID-19 [Recovered/Resolved]

NARRATIVE: CASE EVENT DATE: 20230201
